FAERS Safety Report 5541751-5 (Version None)
Quarter: 2007Q4

REPORT INFORMATION
  Report Type: 
  Country: None (occurrence: None)
  Receive Date: 20071210
  Receipt Date: 20071130
  Transmission Date: 20080405
  Serious: Yes (Hospitalization)
  Sender: FDA-Public Use
  Company Number: A0680142A

PATIENT
  Age: 69 Year
  Sex: Female
  Weight: 97.7 kg

DRUGS (9)
  1. AVANDIA [Suspect]
     Dosage: 8MG PER DAY
     Route: 048
     Dates: end: 20070701
  2. BENICAR [Concomitant]
  3. LORATADINE [Concomitant]
  4. TRAMADOL HCL [Concomitant]
  5. LIPRAM [Concomitant]
  6. POTASSIUM CHLORIDE [Concomitant]
  7. LASIX [Concomitant]
  8. INSULIN [Concomitant]
  9. PRILOSEC [Concomitant]

REACTIONS (11)
  - BLOOD ALKALINE PHOSPHATASE INCREASED [None]
  - CARDIAC FAILURE CONGESTIVE [None]
  - CHEST DISCOMFORT [None]
  - CHEST PAIN [None]
  - DYSPNOEA [None]
  - GLOBULINS INCREASED [None]
  - OEDEMA PERIPHERAL [None]
  - ORTHOPNOEA [None]
  - PROTEIN TOTAL INCREASED [None]
  - PULMONARY OEDEMA [None]
  - SWELLING [None]
